FAERS Safety Report 16408389 (Version 1)
Quarter: 2019Q2

REPORT INFORMATION
  Report Type: Spontaneous
  Country: US (occurrence: US)
  Receive Date: 20190610
  Receipt Date: 20190610
  Transmission Date: 20190711
  Serious: No
  Sender: FDA-Public Use
  Company Number: US-AUROBINDO-AUR-APU-2018-055114

PATIENT
  Sex: Female
  Weight: 16.33 kg

DRUGS (1)
  1. CEFIXIME FOR ORAL SUSPENSION 100 MG/5ML [Suspect]
     Active Substance: CEFIXIME
     Indication: EAR INFECTION
     Dosage: 7 MILLILITER, DAILY
     Route: 065
     Dates: start: 20181103, end: 20181107

REACTIONS (4)
  - Condition aggravated [Unknown]
  - Drug ineffective [Unknown]
  - Product substitution issue [Unknown]
  - Tympanic membrane perforation [Unknown]
